FAERS Safety Report 22284998 (Version 1)
Quarter: 2023Q2

REPORT INFORMATION
  Report Type: Spontaneous
  Country: US (occurrence: None)
  Receive Date: 20230503
  Receipt Date: 20230503
  Transmission Date: 20230722
  Serious: Yes (Life-Threatening, Disabling)
  Sender: FDA-Public Use
  Company Number: None

PATIENT
  Age: 39 Year
  Sex: Female
  Weight: 78.75 kg

DRUGS (7)
  1. ZULRESSO [Suspect]
     Active Substance: BREXANOLONE
     Indication: Postpartum disorder
     Dates: start: 20230403, end: 20230406
  2. ZULRESSO [Suspect]
     Active Substance: BREXANOLONE
     Indication: Affective disorder
  3. ZULRESSO [Concomitant]
     Active Substance: BREXANOLONE
  4. VITAMIN D [Concomitant]
     Active Substance: VITAMIN D NOS
  5. DIETARY SUPPLEMENT [Concomitant]
     Active Substance: DIETARY SUPPLEMENT
  6. VITAMINS [Concomitant]
     Active Substance: VITAMINS
  7. elderberry zinc supplement [Concomitant]

REACTIONS (1)
  - Diarrhoea [None]

NARRATIVE: CASE EVENT DATE: 20230403
